FAERS Safety Report 5039031-X (Version None)
Quarter: 2006Q2

REPORT INFORMATION
  Report Type: 
  Country: None (occurrence: None)
  Receive Date: 20060627
  Receipt Date: 20060627
  Transmission Date: 20061013
  Serious: Yes (Hospitalization)
  Sender: FDA-Public Use
  Company Number: None

PATIENT
  Age: 74 Year
  Sex: Female
  Weight: 76.2043 kg

DRUGS (2)
  1. AVALIDE [Suspect]
     Indication: HYPERTENSION
     Dosage: 12.5/300 QDAY PO
     Route: 048
  2. DILANTIN [Suspect]
     Indication: TONIC CLONIC MOVEMENTS
     Dosage: 200 MG QHS PO
     Route: 048

REACTIONS (6)
  - ANGIONEUROTIC OEDEMA [None]
  - CONVULSION [None]
  - DYSPHAGIA [None]
  - PHARYNGOLARYNGEAL PAIN [None]
  - RASH PRURITIC [None]
  - TONIC CLONIC MOVEMENTS [None]
